FAERS Safety Report 10261563 (Version 1)
Quarter: 2014Q2

REPORT INFORMATION
  Report Type: Spontaneous
  Country: US (occurrence: US)
  Receive Date: 20140626
  Receipt Date: 20140626
  Transmission Date: 20141212
  Serious: Yes (Other)
  Sender: FDA-Public Use
  Company Number: PHEH2014US012612

PATIENT
  Sex: Female

DRUGS (4)
  1. GLEEVEC [Suspect]
     Dosage: 400 MG, QD
  2. XENEX [Concomitant]
     Dosage: UNK UKN, UNK
  3. COLACE [Concomitant]
     Dosage: UNK UKN, UNK
  4. ANTIHYPERTENSIVE DRUGS [Concomitant]
     Dosage: UNK UKN, UNK

REACTIONS (5)
  - Cardiac disorder [Unknown]
  - Pain in extremity [Unknown]
  - Epigastric discomfort [Unknown]
  - Peripheral swelling [Unknown]
  - Muscular weakness [Unknown]
